FAERS Safety Report 6543826-0 (Version None)
Quarter: 2010Q1

REPORT INFORMATION
  Report Type: 
  Country: None (occurrence: None)
  Receive Date: 20100120
  Receipt Date: 20100111
  Transmission Date: 20100710
  Serious: Yes (Hospitalization)
  Sender: FDA-Public Use
  Company Number: JP-ASTRAZENECA-2009SE33630

PATIENT
  Sex: Male

DRUGS (1)
  1. BLOPRESS PLUS [Suspect]
     Indication: HYPERTENSION
     Route: 048
     Dates: start: 20091216

REACTIONS (3)
  - ANGIOEDEMA [None]
  - HEADACHE [None]
  - HYPERTENSION [None]
